FAERS Safety Report 13332946 (Version 2)
Quarter: 2017Q1

REPORT INFORMATION
  Report Type: Spontaneous
  Country: US (occurrence: US)
  Receive Date: 20170314
  Receipt Date: 20170323
  Transmission Date: 20170428
  Serious: No
  Sender: FDA-Public Use
  Company Number: US-PFIZER INC-2017109377

PATIENT
  Age: 68 Year
  Sex: Female
  Weight: 90.26 kg

DRUGS (9)
  1. PIOGLITAZONE HCL [Concomitant]
     Active Substance: PIOGLITAZONE
     Indication: DIABETES MELLITUS
     Dosage: 15 MG, 1X/DAY (15MG PILL ONCE A DAY)
  2. AMLODIPINE [Concomitant]
     Active Substance: AMLODIPINE BESYLATE
     Indication: BLOOD PRESSURE ABNORMAL
     Dosage: 5 MG, 1X/DAY (5MG ONE TABLET EVERY DAY)
  3. PRAVASTATIN. [Concomitant]
     Active Substance: PRAVASTATIN
     Indication: BLOOD CHOLESTEROL ABNORMAL
     Dosage: 40 MG, DAILY (40MG ONE PILL)
  4. GLIPIZIDE ER [Concomitant]
     Active Substance: GLIPIZIDE
     Indication: DIABETES MELLITUS
     Dosage: 15 MG, DAILY (5MG PILL,  TWO AT BEDTIME AND ONE IN MORNING)
  5. LOSARTAN. [Concomitant]
     Active Substance: LOSARTAN
     Indication: BLOOD PRESSURE ABNORMAL
     Dosage: 100 MG, DAILY (100MG ONE PILL)
  6. FAMOTIDINE. [Concomitant]
     Active Substance: FAMOTIDINE
     Indication: DYSPEPSIA
     Dosage: 40 MG, 2X/DAY,  ONE PILL IN MORNING AND ONE AT NIGHT
  7. PRISTIQ EXTENDED-RELEASE [Suspect]
     Active Substance: DESVENLAFAXINE SUCCINATE
     Dosage: 50 MG, 1X/DAY
     Dates: start: 20170303, end: 20170307
  8. MONTELUKAST [Concomitant]
     Active Substance: MONTELUKAST SODIUM
     Indication: HYPERSENSITIVITY
     Dosage: 10 MG, 1X/DAY (10MG PILL ONCE A DAY)
  9. NORTRIPTYLINE [Concomitant]
     Active Substance: NORTRIPTYLINE
     Indication: NERVE INJURY
     Dosage: 20 MG, 1X/DAY (10MG TWO CAPSULES AT BEDTIME)

REACTIONS (6)
  - Asthenia [Recovering/Resolving]
  - Pain [Not Recovered/Not Resolved]
  - Drug intolerance [Unknown]
  - Nausea [Recovered/Resolved]
  - Dizziness [Recovering/Resolving]
  - Hyperhidrosis [Recovered/Resolved]

NARRATIVE: CASE EVENT DATE: 201703
